FAERS Safety Report 4821705-4 (Version None)
Quarter: 2005Q4

REPORT INFORMATION
  Report Type: 
  Country: None (occurrence: None)
  Receive Date: 20051103
  Receipt Date: 20051011
  Transmission Date: 20060501
  Serious: Yes (Death, Hospitalization, Other)
  Sender: FDA-Public Use
  Company Number: USA0508106400

PATIENT
  Age: 58 Year
  Sex: Female

DRUGS (1)
  1. CYMBALTA [Suspect]
     Indication: DEPRESSION
     Dosage: 60 MG/1 DAY

REACTIONS (5)
  - AORTIC DISORDER [None]
  - AORTIC VALVE REPLACEMENT [None]
  - CORONARY ARTERY SURGERY [None]
  - HAEMODYNAMIC INSTABILITY [None]
  - POST PROCEDURAL COMPLICATION [None]
